FAERS Safety Report 7411025-6 (Version None)
Quarter: 2011Q2

REPORT INFORMATION
  Report Type: 
  Country: None (occurrence: None)
  Receive Date: 20110413
  Receipt Date: 20110331
  Transmission Date: 20111010
  Serious: Yes (Hospitalization, Other)
  Sender: FDA-Public Use
  Company Number: US-ELI_LILLY_AND_COMPANY-US201011003125

PATIENT
  Sex: Female

DRUGS (1)
  1. FORTEO [Suspect]
     Indication: OSTEOPOROSIS
     Dosage: 20 UG, DAILY (1/D)
     Dates: start: 20101001

REACTIONS (10)
  - FALL [None]
  - UPPER LIMB FRACTURE [None]
  - TRANSIENT ISCHAEMIC ATTACK [None]
  - PARKINSON'S DISEASE [None]
  - CLAVICLE FRACTURE [None]
  - BONE PAIN [None]
  - GASTROINTESTINAL DISORDER [None]
  - TREMOR [None]
  - DYSPEPSIA [None]
  - DYSPHAGIA [None]
